FAERS Safety Report 11102471 (Version 2)
Quarter: 2015Q2

REPORT INFORMATION
  Report Type: Spontaneous
  Country: PL (occurrence: PL)
  Receive Date: 20150511
  Receipt Date: 20150605
  Transmission Date: 20150821
  Serious: Yes (Other)
  Sender: FDA-Public Use
  Company Number: PHHY2015PL053515

PATIENT
  Age: 54 Year
  Sex: Male
  Weight: 88 kg

DRUGS (1)
  1. METFORMINE HCL [Suspect]
     Active Substance: METFORMIN HYDROCHLORIDE
     Indication: TYPE 2 DIABETES MELLITUS
     Dosage: 500 MG IN THE MORNING AND AT NOON, 750 MG IN THE EVENING
     Route: 048

REACTIONS (3)
  - Drug effect incomplete [Unknown]
  - Erectile dysfunction [Recovering/Resolving]
  - Hyperglycaemia [Recovering/Resolving]
